FAERS Safety Report 5166136-5 (Version None)
Quarter: 2006Q4

REPORT INFORMATION
  Report Type: 
  Country: None (occurrence: None)
  Receive Date: 20061129
  Receipt Date: 20061116
  Transmission Date: 20070319
  Serious: Yes (Other)
  Sender: FDA-Public Use
  Company Number: 2006141835

PATIENT
  Age: 35 Year
  Sex: Male
  Weight: 81.1939 kg

DRUGS (5)
  1. LISTERINE ANTISEPTIC MOUTHWASH (MENTHOL, METHYL SALICYLATE, EUCALYPTOL [Suspect]
     Indication: HYPERSENSITIVITY
     Dosage: CAPFUL 5-8 TIMES PER DAY, ORAL
     Route: 048
  2. LISTERINE ANTISEPTIC MOUTHWASH (MENTHOL, METHYL SALICYLATE, EUCALYPTOL [Suspect]
     Indication: POSTNASAL DRIP
     Dosage: CAPFUL 5-8 TIMES PER DAY, ORAL
     Route: 048
  3. ESCITALOPRAM OXALATE [Concomitant]
  4. BENAZEPRIL (BENAZEPRIL) [Concomitant]
  5. FLUTICASONE PROPIONATE [Concomitant]

REACTIONS (4)
  - BLOOD ALCOHOL INCREASED [None]
  - BREATH ODOUR [None]
  - DRUG ABUSER [None]
  - INCORRECT ROUTE OF DRUG ADMINISTRATION [None]
